FAERS Safety Report 6783810-5 (Version None)
Quarter: 2010Q2

REPORT INFORMATION
  Report Type: 
  Country: None (occurrence: None)
  Receive Date: 20100622
  Receipt Date: 20100609
  Transmission Date: 20101027
  Serious: Yes (Other)
  Sender: FDA-Public Use
  Company Number: PHHY2010JP38233

PATIENT
  Age: 63 Year
  Sex: Female

DRUGS (2)
  1. FAMVIR [Suspect]
     Dosage: 1500 MG, UNK
     Route: 048
     Dates: start: 20100526, end: 20100528
  2. LOXOPROFEN SODIUM [Concomitant]
     Dosage: UNK
     Dates: start: 20100526, end: 20100528

REACTIONS (3)
  - DIZZINESS [None]
  - MALAISE [None]
  - SOMNOLENCE [None]
